FAERS Safety Report 8858953 (Version 1)
Quarter: 2012Q4

REPORT INFORMATION
  Report Type: Report from Study
  Country: CA (occurrence: CA)
  Receive Date: 20121024
  Receipt Date: 20121024
  Transmission Date: 20130627
  Serious: No
  Sender: FDA-Public Use
  Company Number: CA-JNJFOC-20121010865

PATIENT
  Age: 45 Year
  Sex: Female
  Weight: 107 kg

DRUGS (1)
  1. REMICADE [Suspect]
     Indication: CROHN^S DISEASE
     Dosage: total 47 infusions
     Route: 042

REACTIONS (1)
  - Herpes zoster [Recovering/Resolving]
